FAERS Safety Report 8929333 (Version 2)
Quarter: 2013Q1

REPORT INFORMATION
  Report Type: Spontaneous
  Country: PT (occurrence: None)
  Receive Date: 20121119
  Receipt Date: 20121130
  Transmission Date: 20140127
  Serious: Yes (Life-Threatening, Hospitalization)
  Sender: FDA-Public Use
  Company Number: FK201203335

PATIENT
  Age: 72 Year
  Sex: Female

DRUGS (5)
  1. CEFAZOLIN [Suspect]
     Indication: ENDOCARDITIS PROPHYLAXIS
     Route: 042
     Dates: start: 20121026, end: 20121026
  2. ETOMIDATE (ETOMIDATE) (ETOMIDATE) [Concomitant]
  3. FENTANYL (FENTANYL) (FENTANYL) [Concomitant]
  4. HEPARIN (HEPARIN) (HEPARIN) [Concomitant]
  5. VARFINE (WARFARIN SODIUM) (WARFARIN SODIUM) [Concomitant]

REACTIONS (1)
  - Anaphylactic shock [None]
